FAERS Safety Report 18302121 (Version 1)
Quarter: 2020Q3

REPORT INFORMATION
  Report Type: Spontaneous
  Country: US (occurrence: US)
  Receive Date: 20200923
  Receipt Date: 20200923
  Transmission Date: 20201103
  Serious: Yes (Other)
  Sender: FDA-Public Use
  Company Number: US-ASTELLAS-2020US033044

PATIENT
  Age: 46 Year
  Sex: Male

DRUGS (7)
  1. PADCEV [Suspect]
     Active Substance: ENFORTUMAB VEDOTIN-EJFV
     Dosage: UNK UNK, CYCLIC (C2)
     Route: 065
     Dates: start: 20200415
  2. PADCEV [Suspect]
     Active Substance: ENFORTUMAB VEDOTIN-EJFV
     Dosage: UNK UNK, CYCLIC (C5D1)
     Route: 065
     Dates: start: 20200708
  3. PADCEV [Suspect]
     Active Substance: ENFORTUMAB VEDOTIN-EJFV
     Indication: TRANSITIONAL CELL CARCINOMA URETHRA
     Dosage: UNK UNK, CYCLIC (C1)
     Route: 065
     Dates: start: 20200318
  4. PADCEV [Suspect]
     Active Substance: ENFORTUMAB VEDOTIN-EJFV
     Dosage: UNK UNK, CYCLIC (C6D1)
     Route: 065
     Dates: start: 20200804
  5. PADCEV [Suspect]
     Active Substance: ENFORTUMAB VEDOTIN-EJFV
     Dosage: UNK UNK, CYCLIC (PLANNED C7)
     Route: 065
     Dates: start: 20200902
  6. PADCEV [Suspect]
     Active Substance: ENFORTUMAB VEDOTIN-EJFV
     Dosage: UNK UNK, CYCLIC (PLANNED CYCLE 4)
     Route: 065
     Dates: start: 20200610
  7. PADCEV [Suspect]
     Active Substance: ENFORTUMAB VEDOTIN-EJFV
     Dosage: UNK UNK, CYCLIC (C3, DOSE REDUCED IN C3D15)
     Route: 065
     Dates: start: 20200513

REACTIONS (1)
  - Neuropathy peripheral [Recovering/Resolving]
